FAERS Safety Report 6894136-3 (Version None)
Quarter: 2010Q3

REPORT INFORMATION
  Report Type: 
  Country: None (occurrence: None)
  Receive Date: 20100802
  Receipt Date: 20100723
  Transmission Date: 20110219
  Serious: Yes (Hospitalization, Other)
  Sender: FDA-Public Use
  Company Number: US-JNJFOC-20100406839

PATIENT
  Sex: Female

DRUGS (2)
  1. LEVAQUIN [Suspect]
     Indication: PNEUMONIA
     Route: 048
  2. STEROIDS NOS [Suspect]
     Indication: PRODUCT USED FOR UNKNOWN INDICATION

REACTIONS (13)
  - DEEP VEIN THROMBOSIS [None]
  - FALL [None]
  - GAIT DEVIATION [None]
  - GAIT DISTURBANCE [None]
  - LOWER EXTREMITY MASS [None]
  - MUSCULAR WEAKNESS [None]
  - PAIN [None]
  - TENDON RUPTURE [None]
  - TENDONITIS [None]
  - ULNA FRACTURE [None]
  - UPPER LIMB FRACTURE [None]
  - VENOUS OCCLUSION [None]
  - WALKING AID USER [None]
